FAERS Safety Report 15745639 (Version 1)
Quarter: 2018Q4

REPORT INFORMATION
  Report Type: Spontaneous
  Country: US (occurrence: US)
  Receive Date: 20181214
  Receipt Date: 20181214
  Transmission Date: 20190205
  Serious: No
  Sender: FDA-Public Use
  Company Number: None

PATIENT
  Age: 57 Year
  Sex: Female

DRUGS (1)
  1. ENBREL [Suspect]
     Active Substance: ETANERCEPT
     Route: 058
     Dates: start: 201810

REACTIONS (4)
  - Injection site bruising [None]
  - Injection site swelling [None]
  - Injection site erythema [None]
  - Injection site hypersensitivity [None]

NARRATIVE: CASE EVENT DATE: 201811
